FAERS Safety Report 4269786-3 (Version None)
Quarter: 2004Q1

REPORT INFORMATION
  Report Type: 
  Country: None (occurrence: None)
  Receive Date: 20040113
  Receipt Date: 20040102
  Transmission Date: 20041129
  Serious: Yes (Hospitalization)
  Sender: FDA-Public Use
  Company Number: 1-10881214/1-6H801

PATIENT
  Sex: Female

DRUGS (2)
  1. DYNACIN TABLETS 100 MG [Suspect]
     Indication: ACNE
     Dosage: 100 MG BID ORAL
     Route: 048
     Dates: start: 20031219, end: 20031225
  2. TAZORAC [Concomitant]

REACTIONS (3)
  - ARRHYTHMIA [None]
  - HEART RATE IRREGULAR [None]
  - HYPERSENSITIVITY [None]
